FAERS Safety Report 9062098 (Version 1)
Quarter: 2013Q1

REPORT INFORMATION
  Report Type: Spontaneous
  Country: US (occurrence: US)
  Receive Date: 20130127
  Receipt Date: 20130127
  Transmission Date: 20140127
  Serious: No
  Sender: FDA-Public Use
  Company Number: US-ALLERGAN-1201605US

PATIENT
  Sex: Male

DRUGS (5)
  1. PRED FORTE [Suspect]
     Indication: POSTOPERATIVE CARE
     Dosage: 1 GTT, QID
     Route: 047
     Dates: start: 20120118, end: 20120125
  2. PRED FORTE [Suspect]
     Dosage: 1 DROP, 4 TIMES A DAY
     Route: 047
     Dates: start: 201112
  3. ALPHAGAN [Concomitant]
     Indication: GLAUCOMA
     Route: 047
  4. COSOPT [Concomitant]
     Indication: GLAUCOMA
     Route: 047
  5. XALATAN [Concomitant]
     Indication: INTRAOCULAR PRESSURE TEST

REACTIONS (2)
  - Blood glucose increased [Recovered/Resolved]
  - Cough [Recovered/Resolved]
